FAERS Safety Report 14701287 (Version 11)
Quarter: 2019Q4

REPORT INFORMATION
  Report Type: Report from Study
  Country: US (occurrence: US)
  Receive Date: 20180330
  Receipt Date: 20191218
  Transmission Date: 20200122
  Serious: Yes (Death, Life-Threatening, Other)
  Sender: FDA-Public Use
  Company Number: PHEH2018US010330

PATIENT
  Age: 25 Year
  Sex: Male

DRUGS (7)
  1. KYMRIAH [Suspect]
     Active Substance: TISAGENLECLEUCEL
     Indication: B-CELL TYPE ACUTE LEUKAEMIA
     Dosage: UNK, ONCE/SINGLE
     Route: 041
     Dates: start: 20171227
  2. KEPPRA [Concomitant]
     Active Substance: LEVETIRACETAM
     Indication: PRODUCT USED FOR UNKNOWN INDICATION
     Route: 065
  3. RITUXAN [Concomitant]
     Active Substance: RITUXIMAB
     Indication: CHEMOTHERAPY
     Route: 065
  4. CYCLOPHOSPHAMIDE. [Concomitant]
     Active Substance: CYCLOPHOSPHAMIDE
     Indication: CHEMOTHERAPY
     Route: 065
  5. CRESEMBA [Concomitant]
     Active Substance: ISAVUCONAZONIUM SULFATE
     Indication: PRODUCT USED FOR UNKNOWN INDICATION
     Route: 065
  6. INOTUZUMAB [Concomitant]
     Active Substance: INOTUZUMAB OZOGAMICIN
     Indication: CHEMOTHERAPY
     Route: 065
  7. FLUDARABINE [Concomitant]
     Active Substance: FLUDARABINE PHOSPHATE
     Indication: CHEMOTHERAPY
     Route: 065

REACTIONS (20)
  - Platelet count decreased [Unknown]
  - Hypogammaglobulinaemia [Recovered/Resolved]
  - Neutrophil count decreased [Unknown]
  - Rhinovirus infection [Unknown]
  - Viral upper respiratory tract infection [Unknown]
  - Haemoglobin decreased [Recovered/Resolved]
  - Viral sinusitis [Unknown]
  - Chloroma [Unknown]
  - Transformation to acute myeloid leukaemia [Fatal]
  - Pyrexia [Unknown]
  - Cytokine release syndrome [Recovered/Resolved]
  - Tumour lysis syndrome [Unknown]
  - Acute lymphocytic leukaemia [Unknown]
  - Neutrophil count decreased [Recovered/Resolved]
  - Hypotension [Unknown]
  - Hypoxia [Unknown]
  - Depressed level of consciousness [Unknown]
  - White blood cell count decreased [Unknown]
  - Staphylococcal infection [Unknown]
  - Haematocrit decreased [Unknown]
